FAERS Safety Report 10005282 (Version 3)
Quarter: 2015Q2

REPORT INFORMATION
  Report Type: Report from Study
  Country: DE (occurrence: DE)
  Receive Date: 20140312
  Receipt Date: 20150403
  Transmission Date: 20150821
  Serious: Yes (Hospitalization)
  Sender: FDA-Public Use
  Company Number: DE-TEVA-464378USA

PATIENT
  Age: 85 Year
  Sex: Female

DRUGS (3)
  1. RITUXIMAB [Suspect]
     Active Substance: RITUXIMAB
     Indication: B-CELL LYMPHOMA
     Dosage: 690 MG (375 MG/ML), EVERY 3 WEEKS
     Route: 042
     Dates: start: 20130705
  2. L-THYROXINE                        /00068001/ [Concomitant]
     Indication: PRODUCT USED FOR UNKNOWN INDICATION
     Dosage: UNK UNK, UNKNOWN FREQ.
     Route: 065
  3. BENDAMUSTINE HYDROCHLORIDE [Suspect]
     Active Substance: BENDAMUSTINE HYDROCHLORIDE
     Indication: B-CELL LYMPHOMA
     Dosage: UNK UNK, UNKNOWN FREQ.
     Route: 042
     Dates: start: 20130708

REACTIONS (1)
  - Circulatory collapse [Not Recovered/Not Resolved]

NARRATIVE: CASE EVENT DATE: 20140215
